FAERS Safety Report 14404755 (Version 1)
Quarter: 2018Q1

REPORT INFORMATION
  Report Type: Spontaneous
  Country: CN (occurrence: CN)
  Receive Date: 20180118
  Receipt Date: 20180118
  Transmission Date: 20180509
  Serious: Yes (Life-Threatening, Hospitalization, Other)
  Sender: FDA-Public Use
  Company Number: CN-CIPLA LTD.-2017CN12685

PATIENT

DRUGS (7)
  1. LEFLUNOMIDE. [Suspect]
     Active Substance: LEFLUNOMIDE
     Indication: RHEUMATOID ARTHRITIS
     Dosage: 20 MG, PER DAY
     Route: 048
     Dates: start: 2013
  2. METHOTREXATE. [Suspect]
     Active Substance: METHOTREXATE
     Indication: RHEUMATOID ARTHRITIS
     Dosage: 10 MG, PER WEEK
     Route: 048
     Dates: start: 2013
  3. METHYLPREDNISOLONE. [Suspect]
     Active Substance: METHYLPREDNISOLONE
     Indication: RHEUMATOID ARTHRITIS
     Dosage: 8 MG, PER DAY
     Route: 048
     Dates: start: 2013
  4. PANTOPRAZOLE [Suspect]
     Active Substance: PANTOPRAZOLE
     Dosage: 40 MG, PER DAY
     Route: 048
     Dates: start: 2013
  5. TEPRENONE [Suspect]
     Active Substance: TEPRENONE
     Dosage: 50 MG, TID
     Route: 048
     Dates: start: 2013
  6. CELECOXIB. [Suspect]
     Active Substance: CELECOXIB
     Indication: RHEUMATOID ARTHRITIS
     Dosage: 0.2 MG, PER DAY
     Route: 048
     Dates: start: 2013
  7. CALTRATE WITH VITAMIN D [Suspect]
     Active Substance: CALCIUM CARBONATE\CHOLECALCIFEROL
     Dosage: 600 MG, PER DAY
     Route: 048
     Dates: start: 2013

REACTIONS (5)
  - Gastrointestinal haemorrhage [Recovered/Resolved]
  - Bone marrow failure [Recovered/Resolved]
  - Tonsillitis [Recovered/Resolved]
  - Respiratory tract infection [Recovered/Resolved]
  - Hepatotoxicity [Recovered/Resolved]
